FAERS Safety Report 9469254 (Version 4)
Quarter: 2013Q4

REPORT INFORMATION
  Report Type: Spontaneous
  Country: US (occurrence: US)
  Receive Date: 20130821
  Receipt Date: 20131101
  Transmission Date: 20140711
  Serious: No
  Sender: FDA-Public Use
  Company Number: US-PFIZER INC-2013241742

PATIENT
  Sex: Female

DRUGS (2)
  1. LYRICA [Suspect]
     Indication: DIABETIC NEUROPATHY
     Dosage: 75 MG, 2X/DAY
  2. LYRICA [Suspect]
     Indication: INSOMNIA
     Dosage: 100 MG, 2X/DAY

REACTIONS (6)
  - Hypersomnia [Unknown]
  - Sleep apnoea syndrome [Unknown]
  - Influenza [Unknown]
  - Pain [Unknown]
  - Pain in extremity [Unknown]
  - Somnolence [Unknown]
